FAERS Safety Report 17081532 (Version 1)
Quarter: 2019Q4

REPORT INFORMATION
  Report Type: Spontaneous
  Country: US (occurrence: US)
  Receive Date: 20191126
  Receipt Date: 20191126
  Transmission Date: 20200122
  Serious: Yes (Other)
  Sender: FDA-Public Use
  Company Number: None

PATIENT
  Age: 73 Year
  Sex: Male
  Weight: 92.25 kg

DRUGS (14)
  1. APIXABAN 5MG TAB [Concomitant]
     Dates: start: 20181211
  2. FUROSEMIDE 40MG TAB [Concomitant]
     Dates: start: 20181127
  3. ATENOLOL 50MG TAB [Concomitant]
     Dates: start: 20100916
  4. DIPHENHYDRAMINE/LIDOCAINE/ALUMINUM AND MAGNESIUM HYDROXIDE SUSPENSION [Concomitant]
     Dates: start: 20180619
  5. ASPIRIN 81MG CHEWABLE TABLET [Concomitant]
     Dates: start: 20181211
  6. CREON 6,000 UNITS ENTERIC COATED CAPSULE [Concomitant]
     Dates: start: 20160427
  7. CYANOCOBALAMIN 500MCG TAB [Concomitant]
     Dates: start: 20111123
  8. POTASSIUM CHLORIDE 10MEQ SA TAB [Concomitant]
     Dates: start: 20190215
  9. EZETIMIBE 10MG TAB [Concomitant]
     Active Substance: EZETIMIBE
     Dates: start: 20180227
  10. LOSARTAN 25MG TAB [Concomitant]
     Dates: start: 20171205
  11. OMEPRAZOLE 20MG ENTERIC COATED CAPSULE [Concomitant]
     Dates: start: 20130216
  12. ALIROCUMAB 150MG/ML INJ 1ML PEN [Suspect]
     Active Substance: ALIROCUMAB
     Indication: HYPERLIPIDAEMIA
     Dosage: ?          OTHER FREQUENCY:SUBCUTANEOUS;?
     Route: 058
     Dates: start: 20181211, end: 20190926
  13. DILTIAZEM 120MG 24HR CAP [Concomitant]
     Dates: start: 20190311
  14. GABAPENTIN 400MG CAP [Concomitant]
     Dates: start: 20101206

REACTIONS (6)
  - Hyperuricaemia [None]
  - Pyuria [None]
  - Intercapillary glomerulosclerosis [None]
  - Therapy change [None]
  - Haematuria [None]
  - Renal tubular necrosis [None]

NARRATIVE: CASE EVENT DATE: 20190520
